FAERS Safety Report 15435063 (Version 1)
Quarter: 2018Q3

REPORT INFORMATION
  Report Type: Spontaneous
  Country: US (occurrence: US)
  Receive Date: 20180924
  Receipt Date: 20180924
  Transmission Date: 20181010
  Serious: No
  Sender: FDA-Public Use
  Company Number: None

PATIENT
  Sex: Female

DRUGS (1)
  1. ESTRADIOL TRANSDERMAL SYSTEM [Suspect]
     Active Substance: ESTRADIOL
     Indication: MENOPAUSE
     Route: 062
     Dates: start: 20180910, end: 20180917

REACTIONS (4)
  - Application site pruritus [None]
  - Application site rash [None]
  - Product substitution issue [None]
  - Application site erythema [None]
